FAERS Safety Report 25516771 (Version 1)
Quarter: 2025Q3

REPORT INFORMATION
  Report Type: Spontaneous
  Country: US (occurrence: US)
  Receive Date: 20250704
  Receipt Date: 20250704
  Transmission Date: 20251021
  Serious: No
  Sender: RADIUS PHARM
  Company Number: US-RADIUS HEALTH INC.-US-RADIUS-25046273

PATIENT
  Sex: Female

DRUGS (1)
  1. TYMLOS [Suspect]
     Active Substance: ABALOPARATIDE
     Indication: Product used for unknown indication
     Route: 065
     Dates: start: 202502

REACTIONS (6)
  - Malabsorption [Unknown]
  - Bowel movement irregularity [Unknown]
  - Blood albumin decreased [Unknown]
  - Weight increased [Unknown]
  - Skin mass [Unknown]
  - Skin mass [Unknown]

NARRATIVE: CASE EVENT DATE: 20250101
